FAERS Safety Report 11003906 (Version 1)
Quarter: 2015Q2

REPORT INFORMATION
  Report Type: Spontaneous
  Country: US (occurrence: None)
  Receive Date: 20150407
  Receipt Date: 20150407
  Transmission Date: 20150821
  Serious: Yes (Other)
  Sender: FDA-Public Use
  Company Number: 2015SA042667

PATIENT
  Sex: Female

DRUGS (1)
  1. ANALGESIC (TROLAMINE SALICYLATE) [Suspect]
     Active Substance: TROLAMINE SALICYLATE

REACTIONS (1)
  - Breast cancer [None]
